FAERS Safety Report 25042223 (Version 2)
Quarter: 2025Q4

REPORT INFORMATION
  Report Type: Report from Study
  Country: US (occurrence: None)
  Receive Date: 20250305
  Receipt Date: 20251218
  Transmission Date: 20260119
  Serious: Yes (Other)
  Sender: UCB
  Company Number: US-UCBSA-2025011327

PATIENT
  Age: 20 Year
  Weight: 61.678 kg

DRUGS (1)
  1. FENFLURAMINE [Suspect]
     Active Substance: FENFLURAMINE
     Indication: Product used for unknown indication
     Dosage: 0.1 MILLIGRAM/KILOGRAM/DAY TOTALLY 11.8 MILLIGRAM PER DAY

REACTIONS (1)
  - Pulmonary hypertension [Unknown]
